FAERS Safety Report 6523440-3 (Version None)
Quarter: 2009Q4

REPORT INFORMATION
  Report Type: 
  Country: None (occurrence: None)
  Receive Date: 20091231
  Receipt Date: 20091221
  Transmission Date: 20100525
  Serious: No
  Sender: FDA-Public Use
  Company Number: JP-JNJFOC-20091206679

PATIENT
  Age: 88 Year
  Sex: Female

DRUGS (3)
  1. DUROTEP MT PATCH [Suspect]
     Indication: DRUG USE FOR UNKNOWN INDICATION
     Route: 062
  2. DUROTEP MT PATCH [Suspect]
     Route: 062
  3. DICLOFENAC SODIUM [Concomitant]

REACTIONS (4)
  - DIZZINESS [None]
  - DRUG PRESCRIBING ERROR [None]
  - INCORRECT DOSE ADMINISTERED [None]
  - NAUSEA [None]
